FAERS Safety Report 9526390 (Version 1)
Quarter: 2013Q3

REPORT INFORMATION
  Report Type: Spontaneous
  Country: DE (occurrence: DE)
  Receive Date: 20130916
  Receipt Date: 20130916
  Transmission Date: 20140515
  Serious: Yes (Other)
  Sender: FDA-Public Use
  Company Number: DE-ELI_LILLY_AND_COMPANY-DE201309001334

PATIENT
  Sex: Male

DRUGS (6)
  1. FORSTEO [Suspect]
     Indication: OSTEOPOROSIS
     Dosage: 20 UG, UNKNOWN
     Route: 058
     Dates: start: 201209
  2. METHOTREXAT [Concomitant]
     Dosage: UNK, UNKNOWN
     Route: 065
  3. DECORTIN [Concomitant]
     Dosage: 5 MG, UNKNOWN
     Route: 065
  4. OMEPRAZOL [Concomitant]
     Dosage: UNK, UNKNOWN
     Route: 065
  5. THEOPHYLLIN [Concomitant]
     Dosage: UNK, UNKNOWN
     Route: 065
  6. TAMSULOSIN [Concomitant]
     Dosage: UNK, UNKNOWN
     Route: 065

REACTIONS (1)
  - Neuroendocrine carcinoma of the skin [Not Recovered/Not Resolved]
